FAERS Safety Report 15276422 (Version 1)
Quarter: 2018Q3

REPORT INFORMATION
  Report Type: Spontaneous
  Country: US (occurrence: US)
  Receive Date: 20180728
  Receipt Date: 20180728
  Transmission Date: 20181010
  Serious: No
  Sender: FDA-Public Use
  Company Number: None

PATIENT
  Age: 31 Year
  Sex: Female

DRUGS (1)
  1. GILENYA [Suspect]
     Active Substance: FINGOLIMOD HYDROCHLORIDE
     Indication: MULTIPLE SCLEROSIS
     Route: 048
     Dates: start: 20181222

REACTIONS (6)
  - Drug ineffective [None]
  - Depression [None]
  - Malaise [None]
  - Fatigue [None]
  - Movement disorder [None]
  - Limb discomfort [None]

NARRATIVE: CASE EVENT DATE: 20180717
